FAERS Safety Report 4748075-4 (Version None)
Quarter: 2005Q3

REPORT INFORMATION
  Report Type: 
  Country: None (occurrence: None)
  Receive Date: 20050818
  Receipt Date: 20050813
  Transmission Date: 20060218
  Serious: Yes (Other)
  Sender: FDA-Public Use
  Company Number: GB-GLAXOSMITHKLINE-B0390627A

PATIENT
  Age: 46 Year
  Sex: Female
  Weight: 83 kg

DRUGS (4)
  1. MALARONE [Suspect]
     Indication: MALARIA PROPHYLAXIS
     Dosage: 1U PER DAY
     Route: 048
     Dates: start: 20050608, end: 20050611
  2. EPIPEN [Concomitant]
     Indication: ANAPHYLACTIC REACTION
     Route: 030
  3. ALBUTEROL SULFATE HFA [Concomitant]
     Indication: ASTHMA
     Route: 055
     Dates: start: 20030101
  4. PREMARIN [Concomitant]
     Indication: MENOPAUSE
     Dosage: 1U PER DAY
     Route: 048
     Dates: start: 20021011

REACTIONS (1)
  - SENSORY LOSS [None]
